FAERS Safety Report 18527540 (Version 1)
Quarter: 2020Q4

REPORT INFORMATION
  Report Type: Spontaneous
  Country: PT (occurrence: PT)
  Receive Date: 20201120
  Receipt Date: 20201120
  Transmission Date: 20210114
  Serious: Yes (Hospitalization)
  Sender: FDA-Public Use
  Company Number: PT-MYLANLABS-2020M1094784

PATIENT
  Age: 75 Year
  Sex: Male

DRUGS (1)
  1. AMIODARONE [Suspect]
     Active Substance: AMIODARONE
     Indication: PRODUCT USED FOR UNKNOWN INDICATION
     Dosage: UNK
     Route: 065

REACTIONS (14)
  - Localised oedema [Recovering/Resolving]
  - Altered state of consciousness [Recovering/Resolving]
  - Hypoventilation [Recovering/Resolving]
  - Obesity [Recovering/Resolving]
  - Myxoedema coma [Recovered/Resolved]
  - Oedema peripheral [Recovering/Resolving]
  - Respiratory failure [Recovering/Resolving]
  - Hypothyroidism [Recovering/Resolving]
  - Face oedema [Recovering/Resolving]
  - Dyspnoea [Recovering/Resolving]
  - Hypothermia [Recovering/Resolving]
  - Poor peripheral circulation [Recovering/Resolving]
  - Hypokinesia [Recovering/Resolving]
  - Arrhythmia [Recovering/Resolving]
